FAERS Safety Report 8174595-9 (Version None)
Quarter: 2012Q1

REPORT INFORMATION
  Report Type: 
  Country: None (occurrence: None)
  Receive Date: 20120229
  Receipt Date: 20120227
  Transmission Date: 20120608
  Serious: No
  Sender: FDA-Public Use
  Company Number: US-PFIZER INC-2012051673

PATIENT
  Sex: Female
  Weight: 99.773 kg

DRUGS (3)
  1. GEODON [Suspect]
     Indication: BIPOLAR DISORDER
     Dosage: 40 MG, 1X/DAY
     Route: 048
     Dates: start: 20111101
  2. ADDERALL 5 [Concomitant]
     Indication: ATTENTION DEFICIT/HYPERACTIVITY DISORDER
     Dosage: UNK
  3. CYMBALTA [Concomitant]
     Indication: DEPRESSION
     Dosage: UNK

REACTIONS (2)
  - TREMOR [None]
  - HYPOAESTHESIA [None]
